FAERS Safety Report 10421008 (Version 2)
Quarter: 2015Q2

REPORT INFORMATION
  Report Type: Spontaneous
  Country: GB (occurrence: GB)
  Receive Date: 20140828
  Receipt Date: 20150611
  Transmission Date: 20150821
  Serious: Yes (Death)
  Sender: FDA-Public Use
  Company Number: GB-RRD-14-00066

PATIENT
  Age: 8 Month
  Sex: Male
  Weight: 7 kg

DRUGS (2)
  1. ACTINOMYCIN D [Suspect]
     Active Substance: DACTINOMYCIN
     Indication: NEPHROBLASTOMA
     Route: 042
     Dates: start: 20140102, end: 20140122
  2. VINCRISTINE [Concomitant]
     Active Substance: VINCRISTINE
     Indication: NEPHROBLASTOMA
     Route: 065
     Dates: start: 20140102, end: 20140122

REACTIONS (11)
  - Acute hepatic failure [Unknown]
  - Coagulopathy [Unknown]
  - Multi-organ failure [Unknown]
  - Haemoglobin decreased [Unknown]
  - Venoocclusive liver disease [Fatal]
  - Condition aggravated [Unknown]
  - Nausea [Unknown]
  - Gastrointestinal haemorrhage [Unknown]
  - Vomiting [Unknown]
  - Hepatomegaly [Unknown]
  - Abdominal distension [Unknown]

NARRATIVE: CASE EVENT DATE: 20140122
